FAERS Safety Report 24045307 (Version 1)
Quarter: 2024Q3

REPORT INFORMATION
  Report Type: Spontaneous
  Country: GB (occurrence: GB)
  Receive Date: 20240703
  Receipt Date: 20240703
  Transmission Date: 20241016
  Serious: Yes (Other)
  Sender: ALIMERA
  Company Number: GB-ALIMERA SCIENCES INC.-GB-A16013-24-000439

PATIENT
  Age: 63 Year
  Sex: Male

DRUGS (1)
  1. ILUVIEN [Suspect]
     Active Substance: FLUOCINOLONE ACETONIDE
     Indication: Chorioretinitis
     Dosage: 0.25 MICROGRAM, QD - LEFT EYE
     Route: 031
     Dates: start: 202007

REACTIONS (3)
  - Cystoid macular oedema [Unknown]
  - Vitreous loss [Unknown]
  - Ocular procedural complication [Unknown]

NARRATIVE: CASE EVENT DATE: 20200701
